FAERS Safety Report 7572091-0 (Version None)
Quarter: 2011Q2

REPORT INFORMATION
  Report Type: 
  Country: None (occurrence: None)
  Receive Date: 20110624
  Receipt Date: 20110621
  Transmission Date: 20111010
  Serious: Yes (Hospitalization)
  Sender: FDA-Public Use
  Company Number: AE-ABBOTT-11P-166-0727252-00

PATIENT
  Age: 54 Year
  Sex: Female

DRUGS (2)
  1. NEXIUM [Concomitant]
     Indication: PRODUCT USED FOR UNKNOWN INDICATION
  2. HUMIRA [Suspect]
     Indication: RHEUMATOID ARTHRITIS
     Route: 058
     Dates: start: 20090922

REACTIONS (5)
  - POOR QUALITY SLEEP [None]
  - JAUNDICE [None]
  - DECREASED APPETITE [None]
  - PRURITUS [None]
  - AUTOIMMUNE HEPATITIS [None]
